FAERS Safety Report 26181023 (Version 1)
Quarter: 2025Q4

REPORT INFORMATION
  Report Type: Report from Study
  Country: GB (occurrence: GB)
  Receive Date: 20251221
  Receipt Date: 20251221
  Transmission Date: 20260118
  Serious: Yes (Other)
  Sender: NOVARTIS
  Company Number: GB-002147023-NVSC2025GB190299

PATIENT
  Age: 62 Year
  Sex: Male

DRUGS (1)
  1. MAYZENT [Suspect]
     Active Substance: SIPONIMOD
     Indication: Secondary progressive multiple sclerosis
     Dosage: 2 MG, QD
     Route: 048
     Dates: start: 20250916

REACTIONS (2)
  - Lower respiratory tract infection [Recovering/Resolving]
  - Lymphocyte count abnormal [Unknown]

NARRATIVE: CASE EVENT DATE: 20251210
